FAERS Safety Report 4793486-4 (Version None)
Quarter: 2005Q4

REPORT INFORMATION
  Report Type: 
  Country: None (occurrence: None)
  Receive Date: 20051011
  Receipt Date: 20050812
  Transmission Date: 20060501
  Serious: No
  Sender: FDA-Public Use
  Company Number: US-BRISTOL-MYERS SQUIBB COMPANY-13078696

PATIENT
  Age: 67 Year
  Sex: Female

DRUGS (7)
  1. METFORMIN HCL XR TABS [Suspect]
     Indication: DIABETES MELLITUS
     Dosage: EXTENDED RELEASE (ER)
     Route: 048
  2. HYDROCHLOROTHIAZIDE [Concomitant]
  3. CALCIUM CHANNEL BLOCKER [Concomitant]
  4. ACE INHIBITOR [Concomitant]
  5. ASPIRIN [Concomitant]
  6. CHONDROITIN SULFATE + GLUCOSAMINE [Concomitant]
  7. VITAMINS [Concomitant]

REACTIONS (1)
  - DIARRHOEA [None]
